FAERS Safety Report 9132816 (Version 1)
Quarter: 2013Q1

REPORT INFORMATION
  Report Type: Spontaneous
  Country: FR (occurrence: FR)
  Receive Date: 20130301
  Receipt Date: 20130301
  Transmission Date: 20140127
  Serious: Yes (Death)
  Sender: FDA-Public Use
  Company Number: FR-ROCHE-1196960

PATIENT
  Age: 62 Year
  Sex: Male

DRUGS (4)
  1. LUCENTIS [Suspect]
     Indication: AGE-RELATED MACULAR DEGENERATION
     Route: 050
     Dates: start: 20120719
  2. LUCENTIS [Suspect]
     Route: 050
     Dates: start: 20120803
  3. LUCENTIS [Suspect]
     Route: 050
     Dates: start: 20120823
  4. LUCENTIS [Suspect]
     Route: 050
     Dates: start: 20120830

REACTIONS (1)
  - Sudden death [Fatal]
